FAERS Safety Report 21045635 (Version 1)
Quarter: 2022Q3

REPORT INFORMATION
  Report Type: Spontaneous
  Country: US (occurrence: US)
  Receive Date: 20220706
  Receipt Date: 20220706
  Transmission Date: 20221027
  Serious: No
  Sender: FDA-Public Use
  Company Number: ENDG21-04908

PATIENT
  Age: 94 Year
  Sex: Female

DRUGS (3)
  1. CALCITONIN SALMON [Suspect]
     Active Substance: CALCITONIN SALMON
     Indication: Spinal compression fracture
     Dosage: 1 DF, DAILY (1 NASAL PUFF EVERY DAY ON ALTERNATE NOSTRILS)
     Route: 045
     Dates: start: 202105
  2. ARICEPT [Concomitant]
     Active Substance: DONEPEZIL HYDROCHLORIDE
     Indication: Product used for unknown indication
     Dosage: UNK UNKNOWN, UNKNOWN
     Route: 065
  3. SIMVASTATIN [Concomitant]
     Active Substance: SIMVASTATIN
     Indication: Product used for unknown indication
     Dosage: UNK UNKNOWN, UNKNOWN
     Route: 065

REACTIONS (3)
  - Rhinorrhoea [Unknown]
  - Product delivery mechanism issue [Not Recovered/Not Resolved]
  - Off label use [Not Recovered/Not Resolved]

NARRATIVE: CASE EVENT DATE: 20210501
